FAERS Safety Report 12598098 (Version 1)
Quarter: 2016Q3

REPORT INFORMATION
  Report Type: Other
  Country: GB (occurrence: GB)
  Receive Date: 20160726
  Receipt Date: 20160726
  Transmission Date: 20161109
  Serious: Yes (Other)
  Sender: FDA-Public Use
  Company Number: GB-PFM-GB-2016-2184

PATIENT
  Age: 37 Year
  Sex: Male

DRUGS (1)
  1. PROPRANOLOL INN [Suspect]
     Active Substance: PROPRANOLOL HYDROCHLORIDE
     Indication: PRODUCT USED FOR UNKNOWN INDICATION
     Dosage: 80 MG, UNK
     Route: 048

REACTIONS (3)
  - Gout [Recovered/Resolved with Sequelae]
  - Off label use [Unknown]
  - Drug administered to patient of inappropriate age [Unknown]
